FAERS Safety Report 5719835-8 (Version None)
Quarter: 2008Q2

REPORT INFORMATION
  Report Type: 
  Country: None (occurrence: None)
  Receive Date: 20080423
  Receipt Date: 20071120
  Transmission Date: 20081010
  Serious: Yes (Other)
  Sender: FDA-Public Use
  Company Number: 238045

PATIENT
  Age: 85 Year
  Sex: Female
  Weight: 59.9 kg

DRUGS (6)
  1. LUCENTIS [Suspect]
     Indication: MACULAR DEGENERATION
     Dates: end: 20070101
  2. AVASTIN [Suspect]
     Indication: DRUG USE FOR UNKNOWN INDICATION
  3. MACUGEN [Suspect]
     Indication: DRUG USE FOR UNKNOWN INDICATION
  4. LOTREL (AMLODIPINE BESYLATE, BENAZEPRIL HYDROCHLORIDE) [Concomitant]
  5. NEXIUM [Concomitant]
  6. DETROL [Concomitant]

REACTIONS (1)
  - CEREBROVASCULAR ACCIDENT [None]
